FAERS Safety Report 8848937 (Version 1)
Quarter: 2012Q4

REPORT INFORMATION
  Report Type: 
  Country: ES (occurrence: ES)
  Receive Date: 20121017
  Receipt Date: 20121017
  Transmission Date: 20130627
  Serious: Yes (Hospitalization)
  Sender: FDA-Public Use
  Company Number: ES-MYLANLABS-2012S1020939

PATIENT
  Age: 46 Year
  Sex: Female

DRUGS (5)
  1. VALPROIC ACID [Suspect]
     Route: 065
  2. LEVETIRACETAM [Suspect]
     Route: 065
  3. ASPIRIN [Concomitant]
     Route: 065
  4. ATORVASTATIN [Concomitant]
     Route: 065
  5. TAMOXIFEN [Concomitant]
     Route: 065

REACTIONS (2)
  - Porphyria acute [Recovered/Resolved]
  - Psychomotor hyperactivity [Unknown]
